FAERS Safety Report 21057284 (Version 2)
Quarter: 2022Q4

REPORT INFORMATION
  Report Type: Spontaneous
  Country: US (occurrence: US)
  Receive Date: 20220708
  Receipt Date: 20221011
  Transmission Date: 20230113
  Serious: No
  Sender: FDA-Public Use
  Company Number: US-Vifor (International) Inc.-VIT-2022-04433

PATIENT
  Age: 29 Year
  Sex: Male
  Weight: 61 kg

DRUGS (24)
  1. MIRCERA [Suspect]
     Active Substance: METHOXY POLYETHYLENE GLYCOL-EPOETIN BETA
     Indication: Nephrogenic anaemia
     Dosage: EVERY 2 WEEKS
     Route: 040
     Dates: start: 20220419, end: 20220419
  2. MIRCERA [Suspect]
     Active Substance: METHOXY POLYETHYLENE GLYCOL-EPOETIN BETA
     Dosage: DOSE NUMBER 25 AND DOSE CATEGORY IS 21-30+
     Route: 040
     Dates: start: 20220503, end: 20220503
  3. VENOFER [Suspect]
     Active Substance: IRON SUCROSE
     Indication: Anaemia
     Dosage: EVERY WEEK
     Route: 042
     Dates: start: 20211109
  4. VENOFER [Suspect]
     Active Substance: IRON SUCROSE
     Dosage: EVERY TREATMENT
     Route: 040
  5. CLONIDINE [Concomitant]
     Active Substance: CLONIDINE
     Indication: Blood pressure systolic increased
     Route: 048
  6. CLONIDINE [Concomitant]
     Active Substance: CLONIDINE
     Route: 062
  7. CALCITRIOL [Concomitant]
     Active Substance: CALCITRIOL
     Dosage: EVERY TREATMENT
     Route: 048
  8. ACETAMINOPHEN [Concomitant]
     Active Substance: ACETAMINOPHEN
     Indication: Pyrexia
     Dosage: 2 CAPSULES EVERY 4 HOURS AS NEEDED FOR FEVER OR PAIN
     Route: 048
  9. ACETAMINOPHEN [Concomitant]
     Active Substance: ACETAMINOPHEN
     Indication: Pain
  10. AMLODIPINE [Concomitant]
     Active Substance: AMLODIPINE BESYLATE
  11. ATORVASTATIN [Concomitant]
     Active Substance: ATORVASTATIN
  12. BUSPIRONE [Concomitant]
     Active Substance: BUSPIRONE HYDROCHLORIDE
  13. CALTRATE WITH VITAMIN D3 [Concomitant]
     Dosage: 600 MG - 20 MCG
  14. COLACE [Concomitant]
     Active Substance: DOCUSATE SODIUM
     Route: 048
  15. DOXAZOSIN [Concomitant]
     Active Substance: DOXAZOSIN MESYLATE
  16. ECOTRIN [Concomitant]
     Active Substance: ASPIRIN
     Dosage: ENTERIC COATED
     Route: 048
  17. FAMOTIDINE [Concomitant]
     Active Substance: FAMOTIDINE
  18. HYDRALAZINE [Concomitant]
     Active Substance: HYDRALAZINE HYDROCHLORIDE
  19. LEVETIRACETAM [Concomitant]
     Active Substance: LEVETIRACETAM
     Route: 048
  20. LEVETIRACETAM [Concomitant]
     Active Substance: LEVETIRACETAM
     Dosage: AFTER DIALYSIS
  21. LOPRESSOR [Concomitant]
     Active Substance: METOPROLOL TARTRATE
  22. NEPHRO VITE RX [Concomitant]
     Active Substance: ASCORBIC ACID\BIOTIN\CALCIUM PANTOTHENATE\CYANOCOBALAMIN\FOLIC ACID\NIACINAMIDE\PYRIDOXINE HYDROCHLO
     Route: 048
  23. PHOSLYRA [Concomitant]
     Active Substance: CALCIUM ACETATE
     Dosage: 15ML 3X A DAY WITH MEALS
     Route: 048
  24. VENLAFAXINE [Concomitant]
     Active Substance: VENLAFAXINE HYDROCHLORIDE
     Route: 048

REACTIONS (5)
  - Drug hypersensitivity [Recovered/Resolved]
  - Nausea [Recovered/Resolved]
  - Vomiting [Recovered/Resolved]
  - Feeling hot [Recovered/Resolved]
  - Pyrexia [Recovered/Resolved]

NARRATIVE: CASE EVENT DATE: 20220503
